FAERS Safety Report 7715240-3 (Version None)
Quarter: 2011Q3

REPORT INFORMATION
  Report Type: 
  Country: None (occurrence: None)
  Receive Date: 20110829
  Receipt Date: 20110823
  Transmission Date: 20111222
  Serious: Yes (Death, Other)
  Sender: FDA-Public Use
  Company Number: PHEH2011US02620

PATIENT
  Sex: Female

DRUGS (1)
  1. RECLAST [Suspect]
     Dosage: UNK UKN, UNK
     Route: 042

REACTIONS (5)
  - OSTEOPOROSIS [None]
  - GOUT [None]
  - BLOOD CHOLESTEROL ABNORMAL [None]
  - DEATH [None]
  - DERMATITIS [None]
